FAERS Safety Report 24534348 (Version 1)
Quarter: 2024Q4

REPORT INFORMATION
  Report Type: Report from Study
  Country: IL (occurrence: IL)
  Receive Date: 20241022
  Receipt Date: 20241022
  Transmission Date: 20250114
  Serious: Yes (Hospitalization)
  Sender: ABBVIE
  Company Number: IL-ABBVIE-5971546

PATIENT
  Sex: Female

DRUGS (2)
  1. CARBIDOPA\LEVODOPA [Suspect]
     Active Substance: CARBIDOPA\LEVODOPA
     Indication: Parkinson^s disease
     Dosage: STOP DATE TEXT: UNKNOWN
     Route: 050
     Dates: start: 20201229
  2. CARBIDOPA\LEVODOPA [Suspect]
     Active Substance: CARBIDOPA\LEVODOPA
     Dosage: CONTINUOUS DOSE 1.7ML/HOUR, EXTRA DOSE 2.8ML?START DATE TEXT: UNKNOWN
     Route: 050

REACTIONS (5)
  - Head injury [Unknown]
  - Fall [Unknown]
  - Haematoma [Not Recovered/Not Resolved]
  - Tremor [Unknown]
  - Device issue [Recovered/Resolved]

NARRATIVE: CASE EVENT DATE: 20240101
